FAERS Safety Report 14301932 (Version 1)
Quarter: 2017Q4

REPORT INFORMATION
  Report Type: Spontaneous
  Country: US (occurrence: US)
  Receive Date: 20171218
  Receipt Date: 20171218
  Transmission Date: 20180321
  Serious: Yes (Hospitalization)
  Sender: FDA-Public Use
  Company Number: None

PATIENT
  Age: 78 Year
  Sex: Male

DRUGS (1)
  1. MINOXIDIL. [Suspect]
     Active Substance: MINOXIDIL
     Indication: HYPERTENSION
     Route: 048
     Dates: start: 20171026, end: 20171107

REACTIONS (12)
  - Abdominal pain upper [None]
  - Fluid overload [None]
  - Haemodialysis [None]
  - Fluid retention [None]
  - Weight increased [None]
  - Ascites [None]
  - Oedema peripheral [None]
  - Nausea [None]
  - Asthenia [None]
  - Oliguria [None]
  - Acute kidney injury [None]
  - Cardiac failure [None]

NARRATIVE: CASE EVENT DATE: 20171107
